FAERS Safety Report 6578298-3 (Version None)
Quarter: 2010Q1

REPORT INFORMATION
  Report Type: 
  Country: None (occurrence: None)
  Receive Date: 20100211
  Receipt Date: 20100208
  Transmission Date: 20100710
  Serious: Yes (Life-Threatening, Hospitalization)
  Sender: FDA-Public Use
  Company Number: B0631840A

PATIENT
  Sex: Female

DRUGS (6)
  1. AUGMENTIN [Suspect]
     Dosage: 2G SINGLE DOSE
     Route: 065
     Dates: start: 20091001, end: 20091001
  2. HYPNOVEL [Concomitant]
     Dosage: 4MG SINGLE DOSE
     Route: 065
     Dates: start: 20091001, end: 20091001
  3. DIPRIVAN [Concomitant]
     Dosage: 150MG SINGLE DOSE
     Route: 065
     Dates: start: 20091001, end: 20091001
  4. SUFENTANIL [Concomitant]
     Dosage: 20MCG SINGLE DOSE
     Route: 065
     Dates: start: 20091001, end: 20091001
  5. NIMBEX [Concomitant]
     Dosage: 4MG SINGLE DOSE
     Route: 065
     Dates: start: 20091001, end: 20091001
  6. KETAMINE HCL [Concomitant]
     Dosage: 10MG SINGLE DOSE
     Route: 065
     Dates: start: 20091001, end: 20091001

REACTIONS (2)
  - ANAPHYLACTIC SHOCK [None]
  - HYPOTENSION [None]
